FAERS Safety Report 4466617-3 (Version None)
Quarter: 2004Q3

REPORT INFORMATION
  Report Type: 
  Country: None (occurrence: None)
  Receive Date: 20040928
  Receipt Date: 20040928
  Transmission Date: 20050211
  Serious: Yes (Life-Threatening)
  Sender: FDA-Public Use
  Company Number: None

PATIENT
  Age: 93 Year
  Sex: Male

DRUGS (2)
  1. OXILAN 100 CC [Suspect]
     Indication: PULMONARY EMBOLISM
     Dosage: IV
     Route: 042
     Dates: start: 20040921
  2. OXILAN 50 CC [Suspect]

REACTIONS (1)
  - PHARYNGEAL OEDEMA [None]
